FAERS Safety Report 12841676 (Version 5)
Quarter: 2019Q3

REPORT INFORMATION
  Report Type: Spontaneous
  Country: FR (occurrence: FR)
  Receive Date: 20161012
  Receipt Date: 20190724
  Transmission Date: 20191004
  Serious: Yes (Disabling)
  Sender: FDA-Public Use
  Company Number: FR-SA-2016SA182856

PATIENT
  Age: 41 Year
  Sex: Female
  Weight: 74 kg

DRUGS (31)
  1. TAXOTERE [Suspect]
     Active Substance: DOCETAXEL
     Dosage: 180 MG,QCY
     Route: 042
     Dates: start: 20120125, end: 20120125
  2. TAXOTERE [Suspect]
     Active Substance: DOCETAXEL
     Dosage: 180 MG,QCY
     Route: 042
     Dates: start: 20120215, end: 20120215
  3. FLUOROURACIL. [Suspect]
     Active Substance: FLUOROURACIL
     Indication: PRODUCT USED FOR UNKNOWN INDICATION
     Dosage: 900 MG, QCY
     Route: 042
     Dates: start: 20111026, end: 20111026
  4. ZOPHREN [ONDANSETRON HYDROCHLORIDE] [Concomitant]
     Active Substance: ONDANSETRON
     Dosage: 8 MG
     Route: 042
     Dates: start: 20120125, end: 20120125
  5. SODIUM CHLORIDE. [Concomitant]
     Active Substance: SODIUM CHLORIDE
     Dosage: 0,9% 250 ML
     Route: 042
     Dates: start: 20111126, end: 20111126
  6. SODIUM CHLORIDE. [Concomitant]
     Active Substance: SODIUM CHLORIDE
     Dosage: 0,9% 250 ML
     Route: 042
     Dates: start: 20111207, end: 20111207
  7. LEVOCARNIL [LEVOCARNITINE] [Concomitant]
     Active Substance: LEVOCARNITINE
  8. SODIUM CHLORIDE. [Concomitant]
     Active Substance: SODIUM CHLORIDE
     Dosage: 0,9% 250 ML
     Route: 042
     Dates: start: 20111116, end: 20111116
  9. SODIUM CHLORIDE. [Concomitant]
     Active Substance: SODIUM CHLORIDE
     Dosage: 0,9% 150 ML
     Route: 042
     Dates: start: 20120104, end: 20120104
  10. CYCLOPHOSPHAMIDE. [Suspect]
     Active Substance: CYCLOPHOSPHAMIDE
     Indication: PRODUCT USED FOR UNKNOWN INDICATION
     Dosage: 900 MG, QCY
     Route: 042
     Dates: start: 20111026, end: 20111026
  11. FLUOROURACIL. [Suspect]
     Active Substance: FLUOROURACIL
     Dosage: 900 UNK
     Route: 042
     Dates: start: 20111207, end: 20111207
  12. SODIUM CHLORIDE. [Concomitant]
     Active Substance: SODIUM CHLORIDE
     Dosage: 0,9% 50 ML
     Route: 042
     Dates: start: 20120125, end: 20120125
  13. ZELITREX [Concomitant]
     Active Substance: VALACYCLOVIR HYDROCHLORIDE
     Dosage: 2 DF, QD
  14. ZOPHREN [ONDANSETRON HYDROCHLORIDE] [Concomitant]
     Active Substance: ONDANSETRON
     Dosage: 8 MG
     Route: 042
     Dates: start: 20111026, end: 20111026
  15. ZELITREX [Concomitant]
     Active Substance: VALACYCLOVIR HYDROCHLORIDE
     Dosage: 1 DF, QD
  16. CYCLOPHOSPHAMIDE. [Suspect]
     Active Substance: CYCLOPHOSPHAMIDE
     Dosage: 900 MG, QCY
     Route: 042
     Dates: start: 20111116, end: 20111116
  17. CYCLOPHOSPHAMIDE. [Suspect]
     Active Substance: CYCLOPHOSPHAMIDE
     Dosage: 900 MG, QCY
     Route: 042
     Dates: start: 20111207, end: 20111207
  18. EPIRUBICIN [Suspect]
     Active Substance: EPIRUBICIN
     Dosage: 180 MG, QCY
     Dates: start: 20111116, end: 20111116
  19. TAXOTERE [Suspect]
     Active Substance: DOCETAXEL
     Indication: BREAST CANCER
     Dosage: 180 MG,QCY
     Route: 042
     Dates: start: 20120104, end: 20120104
  20. EPIRUBICIN [Suspect]
     Active Substance: EPIRUBICIN
     Indication: PRODUCT USED FOR UNKNOWN INDICATION
     Dosage: 180 MG, QCY
     Route: 042
     Dates: start: 20111026, end: 20111026
  21. NOLVADEX [Suspect]
     Active Substance: TAMOXIFEN CITRATE
     Indication: BREAST CANCER
     Dosage: UNK
     Route: 065
     Dates: start: 201205
  22. ZOPHREN [ONDANSETRON HYDROCHLORIDE] [Concomitant]
     Active Substance: ONDANSETRON
     Dosage: 8 MG
     Route: 042
     Dates: start: 20111116, end: 20111116
  23. ZOPHREN [ONDANSETRON HYDROCHLORIDE] [Concomitant]
     Active Substance: ONDANSETRON
     Dosage: 8 MG
     Route: 042
     Dates: start: 20120104, end: 20120104
  24. ZOPHREN [ONDANSETRON HYDROCHLORIDE] [Concomitant]
     Active Substance: ONDANSETRON
     Dosage: 8 MG
     Route: 042
     Dates: start: 20120215, end: 20120215
  25. NEURONTIN [Concomitant]
     Active Substance: GABAPENTIN
  26. FLUOROURACIL. [Suspect]
     Active Substance: FLUOROURACIL
     Dosage: 900 UNK
     Route: 042
     Dates: start: 20111116, end: 20111116
  27. TAMOXIFEN CITRATE. [Suspect]
     Active Substance: TAMOXIFEN CITRATE
     Indication: BREAST CANCER
     Dosage: UNK UNK, UNK
     Route: 065
     Dates: start: 20120501
  28. ZOPHREN [ONDANSETRON HYDROCHLORIDE] [Concomitant]
     Active Substance: ONDANSETRON
     Dosage: 8 MG
     Route: 042
     Dates: start: 20111207, end: 20111207
  29. TAXOTERE [Suspect]
     Active Substance: DOCETAXEL
     Dosage: UNK UNK,QCY
     Route: 042
     Dates: start: 20160216, end: 20160216
  30. EPIRUBICIN [Suspect]
     Active Substance: EPIRUBICIN
     Dosage: 180 MG, QCY
     Dates: start: 20111207, end: 20111207
  31. SODIUM CHLORIDE. [Concomitant]
     Active Substance: SODIUM CHLORIDE
     Dosage: 0,9% 108 ML
     Route: 042
     Dates: start: 20120215, end: 20120215

REACTIONS (34)
  - Cognitive disorder [Unknown]
  - Weight increased [Unknown]
  - Paraesthesia [Unknown]
  - Cognitive disorder [Not Recovered/Not Resolved]
  - Quality of life decreased [Not Recovered/Not Resolved]
  - Radiation neuropathy [Not Recovered/Not Resolved]
  - Myalgia [Not Recovered/Not Resolved]
  - Hallucination [Not Recovered/Not Resolved]
  - Muscle spasms [Unknown]
  - Insomnia [Not Recovered/Not Resolved]
  - Hot flush [Not Recovered/Not Resolved]
  - Neuralgia [Not Recovered/Not Resolved]
  - Burning sensation [Unknown]
  - Impaired work ability [Not Recovered/Not Resolved]
  - Tinnitus [Not Recovered/Not Resolved]
  - Pain [Not Recovered/Not Resolved]
  - Ageusia [Unknown]
  - Fatigue [Not Recovered/Not Resolved]
  - Vomiting [Unknown]
  - Blister [Unknown]
  - Tetany [Not Recovered/Not Resolved]
  - Xerosis [Unknown]
  - Visual impairment [Not Recovered/Not Resolved]
  - Disturbance in attention [Not Recovered/Not Resolved]
  - Pain in extremity [Not Recovered/Not Resolved]
  - Neuropathy peripheral [Not Recovered/Not Resolved]
  - Arthralgia [Unknown]
  - Facial pain [Not Recovered/Not Resolved]
  - Depression [Not Recovered/Not Resolved]
  - Muscle contracture [Not Recovered/Not Resolved]
  - Dysstasia [Not Recovered/Not Resolved]
  - Gait disturbance [Not Recovered/Not Resolved]
  - Emotional disorder [Not Recovered/Not Resolved]
  - Neuromuscular pain [Not Recovered/Not Resolved]

NARRATIVE: CASE EVENT DATE: 2011
